FAERS Safety Report 13150461 (Version 2)
Quarter: 2017Q3

REPORT INFORMATION
  Report Type: Spontaneous
  Country: IN (occurrence: IN)
  Receive Date: 20170125
  Receipt Date: 20170815
  Transmission Date: 20171127
  Serious: Yes (Death, Other)
  Sender: FDA-Public Use
  Company Number: IN-PFIZER INC-2017031734

PATIENT
  Age: 30 Year
  Sex: Male

DRUGS (11)
  1. SILDENAFIL CITRATE. [Suspect]
     Active Substance: SILDENAFIL CITRATE
     Indication: PULMONARY CAPILLARY HAEMANGIOMATOSIS
  2. OXYGEN. [Concomitant]
     Active Substance: OXYGEN
     Indication: PULMONARY VENO-OCCLUSIVE DISEASE
  3. SPIRONOLACTONE. [Suspect]
     Active Substance: SPIRONOLACTONE
     Dosage: UNK
  4. PNEUMOCOCCAL VACCINE POLYVALENT NOS [Concomitant]
     Active Substance: PNEUMOCOCCAL VACCINE POLYVALENT
     Dosage: UNK
  5. INFLUENZA VACCINE [Concomitant]
     Active Substance: INFLUENZA VIRUS VACCINE
     Dosage: UNK
  6. DIGOXIN. [Concomitant]
     Active Substance: DIGOXIN
     Indication: PULMONARY VENO-OCCLUSIVE DISEASE
     Route: 048
  7. OXYGEN. [Concomitant]
     Active Substance: OXYGEN
     Indication: PULMONARY CAPILLARY HAEMANGIOMATOSIS
  8. DOXYCYCLINE MONOHYDRATE [Suspect]
     Active Substance: DOXYCYCLINE
     Indication: PULMONARY VENO-OCCLUSIVE DISEASE
  9. DOXYCYCLINE MONOHYDRATE [Suspect]
     Active Substance: DOXYCYCLINE
     Indication: PULMONARY CAPILLARY HAEMANGIOMATOSIS
     Dosage: UNK
  10. SILDENAFIL CITRATE. [Suspect]
     Active Substance: SILDENAFIL CITRATE
     Indication: PULMONARY VENO-OCCLUSIVE DISEASE
     Dosage: UNK
  11. DIGOXIN. [Concomitant]
     Active Substance: DIGOXIN
     Indication: PULMONARY CAPILLARY HAEMANGIOMATOSIS
     Dosage: UNK
     Route: 048

REACTIONS (6)
  - Condition aggravated [Fatal]
  - Pulmonary veno-occlusive disease [Fatal]
  - Hepatic enzyme increased [Unknown]
  - Gynaecomastia [Unknown]
  - Toxicity to various agents [Unknown]
  - Pulmonary capillary haemangiomatosis [Fatal]
